FAERS Safety Report 9199610 (Version 1)
Quarter: 2013Q1

REPORT INFORMATION
  Report Type: Spontaneous
  Country: US (occurrence: US)
  Receive Date: 20130329
  Receipt Date: 20130329
  Transmission Date: 20140127
  Serious: Yes (Other)
  Sender: FDA-Public Use
  Company Number: US-GLAXOSMITHKLINE-A1011113A

PATIENT
  Sex: 0

DRUGS (3)
  1. BENLYSTA [Suspect]
     Indication: SYSTEMIC LUPUS ERYTHEMATOSUS
     Dosage: 10MGK UNKNOWN
     Route: 042
  2. BENADRYL [Concomitant]
  3. SOLU-MEDROL [Concomitant]

REACTIONS (2)
  - Infusion related reaction [Unknown]
  - Rash [Unknown]
